FAERS Safety Report 13349776 (Version 1)
Quarter: 2017Q1

REPORT INFORMATION
  Report Type: Spontaneous
  Country: US (occurrence: US)
  Receive Date: 20170318
  Receipt Date: 20170318
  Transmission Date: 20170429
  Serious: Yes (Other)
  Sender: FDA-Public Use
  Company Number: None

PATIENT
  Age: 48 Year
  Sex: Female
  Weight: 74.25 kg

DRUGS (9)
  1. CYMBALTA [Concomitant]
     Active Substance: DULOXETINE HYDROCHLORIDE
  2. TOPAMAX [Concomitant]
     Active Substance: TOPIRAMATE
  3. INDOMETHACIN ER 75 MG [Suspect]
     Active Substance: INDOMETHACIN
     Indication: HEADACHE
     Dosage: ?          QUANTITY:30 CAPSULE(S);?
     Route: 048
     Dates: start: 20140301, end: 20170313
  4. INDOMETHACIN ER 75 MG [Suspect]
     Active Substance: INDOMETHACIN
     Indication: NERVE INJURY
     Dosage: ?          QUANTITY:30 CAPSULE(S);?
     Route: 048
     Dates: start: 20140301, end: 20170313
  5. INDOMETHACIN ER 75 MG [Suspect]
     Active Substance: INDOMETHACIN
     Indication: TONSILLECTOMY
     Dosage: ?          QUANTITY:30 CAPSULE(S);?
     Route: 048
     Dates: start: 20140301, end: 20170313
  6. GABAPENTIN. [Concomitant]
     Active Substance: GABAPENTIN
  7. VITAMIN D3 [Concomitant]
     Active Substance: CHOLECALCIFEROL
  8. SYNTHROID [Concomitant]
     Active Substance: LEVOTHYROXINE SODIUM
  9. OMEPRAZOLE. [Concomitant]
     Active Substance: OMEPRAZOLE

REACTIONS (2)
  - Anaemia [None]
  - Colitis ulcerative [None]

NARRATIVE: CASE EVENT DATE: 20170313
